FAERS Safety Report 20356402 (Version 1)
Quarter: 2022Q1

REPORT INFORMATION
  Report Type: Spontaneous
  Country: US (occurrence: US)
  Receive Date: 20220120
  Receipt Date: 20220120
  Transmission Date: 20220424
  Serious: Yes (Other)
  Sender: FDA-Public Use
  Company Number: US-GLAXOSMITHKLINE-US2022GSK008071

PATIENT
  Sex: Female

DRUGS (10)
  1. ZANTAC [Suspect]
     Active Substance: RANITIDINE HYDROCHLORIDE
     Indication: Dyspepsia
     Dosage: 25 MG, AS DIRECTED FROM BOTTLE
     Route: 065
     Dates: start: 199801, end: 200906
  2. ZANTAC [Suspect]
     Active Substance: RANITIDINE HYDROCHLORIDE
     Dosage: 75 MG, AS DIRECTED FROM BOTTLE
     Route: 065
     Dates: start: 199801, end: 200906
  3. ZANTAC [Suspect]
     Active Substance: RANITIDINE HYDROCHLORIDE
     Dosage: 150 MG, AS DIRECTED FROM BOTTLE
     Route: 065
     Dates: start: 199801, end: 200906
  4. ZANTAC [Suspect]
     Active Substance: RANITIDINE HYDROCHLORIDE
     Dosage: 300 MG, AS DIRECTED FROM BOTTLE
     Route: 065
     Dates: start: 199801, end: 200906
  5. ZANTAC [Suspect]
     Active Substance: RANITIDINE HYDROCHLORIDE
     Indication: Dyspepsia
     Dosage: 25 MG, AS DIRECTED FROM BOTTLE
     Route: 065
     Dates: start: 199801, end: 200906
  6. ZANTAC [Suspect]
     Active Substance: RANITIDINE HYDROCHLORIDE
     Dosage: 75 MG, AS DIRECTED FROM BOTTLE
     Route: 065
     Dates: start: 199801, end: 200906
  7. ZANTAC [Suspect]
     Active Substance: RANITIDINE HYDROCHLORIDE
     Dosage: 150 MG, AS DIRECTED FROM BOTTLE
     Route: 065
     Dates: start: 199801, end: 200906
  8. ZANTAC [Suspect]
     Active Substance: RANITIDINE HYDROCHLORIDE
     Dosage: 300 MG, AS DIRECTED FROM BOTTLE
     Route: 065
     Dates: start: 199801, end: 200906
  9. RANITIDINE HYDROCHLORIDE [Suspect]
     Active Substance: RANITIDINE HYDROCHLORIDE
     Indication: Dyspepsia
     Dosage: 25 MG/ML, DAILY AS DIRECTED FROM BOTTLE
     Route: 065
     Dates: start: 199801, end: 200006
  10. RANITIDINE HYDROCHLORIDE [Suspect]
     Active Substance: RANITIDINE HYDROCHLORIDE
     Dosage: 50 MG/ML, DAILY AS DIRECTED FROM BOTTLE
     Route: 065
     Dates: start: 199801, end: 200006

REACTIONS (2)
  - Breast cancer [Unknown]
  - Brain neoplasm malignant [Unknown]
